FAERS Safety Report 5234922-9 (Version None)
Quarter: 2007Q1

REPORT INFORMATION
  Report Type: 
  Country: None (occurrence: None)
  Receive Date: 20070209
  Receipt Date: 20070201
  Transmission Date: 20070707
  Serious: Yes (Hospitalization)
  Sender: FDA-Public Use
  Company Number: FR-PFIZER INC-2007009313

PATIENT
  Age: 80 Year
  Sex: Female

DRUGS (1)
  1. CELEBREX [Suspect]
     Indication: OSTEOARTHRITIS
     Dosage: DAILY DOSE:200MG
     Dates: start: 20060101, end: 20061202

REACTIONS (2)
  - ARRHYTHMIA [None]
  - ATRIAL FIBRILLATION [None]
